FAERS Safety Report 7707689-X (Version None)
Quarter: 2011Q3

REPORT INFORMATION
  Report Type: 
  Country: None (occurrence: None)
  Receive Date: 20110824
  Receipt Date: 20110816
  Transmission Date: 20111222
  Serious: Yes (Hospitalization, Other)
  Sender: FDA-Public Use
  Company Number: US-BAYER-201039834NA

PATIENT
  Age: 27 Year
  Sex: Female
  Weight: 83.447 kg

DRUGS (2)
  1. VICODIN [Concomitant]
     Dosage: UNK
     Dates: end: 20081122
  2. DROSPIRENONE AND ETHINYL ESTRADIOL [Suspect]
     Indication: CONTRACEPTION
     Dosage: UNK
     Dates: start: 20071101, end: 20081101

REACTIONS (1)
  - PULMONARY EMBOLISM [None]
